FAERS Safety Report 10723113 (Version 1)
Quarter: 2015Q1

REPORT INFORMATION
  Report Type: Spontaneous
  Country: JP (occurrence: JP)
  Receive Date: 20150120
  Receipt Date: 20150120
  Transmission Date: 20150721
  Serious: Yes (Death)
  Sender: FDA-Public Use
  Company Number: JP-CIPLA LTD.-2015JP00379

PATIENT

DRUGS (2)
  1. GEMCITABINE [Suspect]
     Active Substance: GEMCITABINE\GEMCITABINE HYDROCHLORIDE
     Indication: PANCREATIC CARCINOMA
     Dosage: FIXED DOSE RATE INTRAVENOUS OF 1,200 MG/M2/120 MIN ON DAY 1, REPEATED EVERY 2 WEEKS
  2. S-1 [Suspect]
     Active Substance: GIMERACIL\OTERACIL\TEGAFUR
     Indication: PANCREATIC CARCINOMA
     Dosage: 40 MG/M2 TWICE ON DAYS 1-7, FOLLOWED BY A 1 WEEK REST, REPEATED EVERY 2 WEEKS
     Route: 048

REACTIONS (1)
  - Cerebrovascular accident [Fatal]
